FAERS Safety Report 22378467 (Version 1)
Quarter: 2023Q2

REPORT INFORMATION
  Report Type: Spontaneous
  Country: US (occurrence: US)
  Receive Date: 20230529
  Receipt Date: 20230529
  Transmission Date: 20230721
  Serious: No
  Sender: FDA-Public Use
  Company Number: US-PERRIGO-22US015557

PATIENT
  Age: 64 Year
  Sex: Male
  Weight: 81.633 kg

DRUGS (3)
  1. MINOXIDIL [Suspect]
     Active Substance: MINOXIDIL
     Indication: Product used for unknown indication
     Dosage: 1/2 CAPFUL, BID
     Route: 061
     Dates: start: 202206, end: 202211
  2. MINOXIDIL [Suspect]
     Active Substance: MINOXIDIL
     Dosage: 1/2 CAPFUL, BID
     Route: 061
     Dates: start: 202211
  3. REPATHA [Concomitant]
     Active Substance: EVOLOCUMAB
     Indication: Arterial disorder
     Dosage: UNK
     Route: 065
     Dates: start: 2020

REACTIONS (4)
  - Skin exfoliation [Recovered/Resolved]
  - Erythema [Recovered/Resolved]
  - Periorbital oedema [Recovered/Resolved]
  - Application site pain [Recovered/Resolved]

NARRATIVE: CASE EVENT DATE: 20221101
